FAERS Safety Report 7434277-5 (Version None)
Quarter: 2011Q2

REPORT INFORMATION
  Report Type: 
  Country: None (occurrence: None)
  Receive Date: 20110425
  Receipt Date: 20110419
  Transmission Date: 20111010
  Serious: Yes (Other)
  Sender: FDA-Public Use
  Company Number: US-PFIZER INC-2011086340

PATIENT
  Sex: Female

DRUGS (2)
  1. NEURONTIN [Suspect]
     Indication: PAIN IN EXTREMITY
     Dosage: UNK
  2. ISOSORBIDE [Concomitant]
     Dosage: UNK

REACTIONS (4)
  - DYSKINESIA [None]
  - FATIGUE [None]
  - AMNESIA [None]
  - COORDINATION ABNORMAL [None]
